FAERS Safety Report 8223392-4 (Version None)
Quarter: 2012Q1

REPORT INFORMATION
  Report Type: 
  Country: None (occurrence: None)
  Receive Date: 20120321
  Receipt Date: 20120314
  Transmission Date: 20120608
  Serious: Yes (Hospitalization)
  Sender: FDA-Public Use
  Company Number: US-BAYER-201033125NA

PATIENT
  Age: 38 Year
  Sex: Female
  Weight: 80.726 kg

DRUGS (10)
  1. SPIRONOLACTONE [Concomitant]
     Dosage: UNK
     Dates: start: 20000101, end: 20100101
  2. PHENTERMINE [Concomitant]
  3. IBUPROFEN [Concomitant]
     Dosage: 800 MG, UNK
     Dates: start: 20050101
  4. YAZ [Suspect]
     Dosage: UNK
     Route: 048
     Dates: start: 20070601, end: 20071201
  5. IBUPROFEN [Concomitant]
     Dosage: 800 MG, UNK
     Dates: start: 20060101
  6. CEPHALEXIN [Concomitant]
     Dosage: UNK
     Dates: start: 20071120, end: 20071130
  7. IBUPROFEN [Concomitant]
     Dosage: 800 MG, UNK
     Dates: start: 20070101
  8. APAP W/ CODEINE [Concomitant]
     Indication: PAIN
     Dosage: 1-2 TABLETS DAILY
     Dates: start: 20071204, end: 20071219
  9. METFORMIN HCL [Concomitant]
     Indication: DIABETES MELLITUS
     Dosage: UNK
  10. WELLBUTRIN [Concomitant]
     Indication: DEPRESSION
     Dosage: UNK
     Dates: start: 20031201, end: 20070801

REACTIONS (3)
  - ANXIETY [None]
  - DEPRESSION [None]
  - PULMONARY EMBOLISM [None]
